FAERS Safety Report 9821357 (Version 2)
Quarter: 2014Q1

REPORT INFORMATION
  Report Type: Spontaneous
  Country: US (occurrence: None)
  Receive Date: 20131028
  Receipt Date: 20140115
  Transmission Date: 20141002
  Serious: No
  Sender: FDA-Public Use
  Company Number: 2013US001196

PATIENT
  Age: 79 Year
  Sex: Male

DRUGS (1)
  1. ICLUSIG [Suspect]
     Route: 048

REACTIONS (2)
  - White blood cell count increased [None]
  - No adverse event [None]
